FAERS Safety Report 14900569 (Version 2)
Quarter: 2019Q4

REPORT INFORMATION
  Report Type: Spontaneous
  Country: US (occurrence: US)
  Receive Date: 20180516
  Receipt Date: 20191018
  Transmission Date: 20200122
  Serious: No
  Sender: FDA-Public Use
  Company Number: US-PFIZER INC-2018196955

PATIENT
  Age: 58 Year
  Sex: Female

DRUGS (1)
  1. XELJANZ XR [Suspect]
     Active Substance: TOFACITINIB CITRATE
     Indication: INSOMNIA
     Dosage: 11 MG, UNK

REACTIONS (4)
  - Product use in unapproved indication [Unknown]
  - Pain [Unknown]
  - Off label use [Unknown]
  - Product dose omission [Unknown]
